FAERS Safety Report 8025830-9 (Version None)
Quarter: 2012Q1

REPORT INFORMATION
  Report Type: 
  Country: None (occurrence: None)
  Receive Date: 20120105
  Receipt Date: 20110328
  Transmission Date: 20120608
  Serious: No
  Sender: FDA-Public Use
  Company Number: US-ABBOTT-11P-163-0715351-00

PATIENT
  Sex: Female
  Weight: 77.18 kg

DRUGS (7)
  1. CLONAZEPAM [Concomitant]
     Indication: PRODUCT USED FOR UNKNOWN INDICATION
  2. SYNTHROID [Suspect]
     Dosage: 50 MCG DAILY DOSE
     Route: 048
     Dates: start: 20090401, end: 20090401
  3. CELEXA [Concomitant]
     Indication: PRODUCT USED FOR UNKNOWN INDICATION
  4. RESTASIS [Concomitant]
     Indication: PRODUCT USED FOR UNKNOWN INDICATION
     Route: 047
  5. PLAQUENIL [Concomitant]
     Indication: PRODUCT USED FOR UNKNOWN INDICATION
  6. SYNTHROID [Suspect]
     Indication: HYPOTHYROIDISM
     Dosage: 50 MCG DAILY DOSE
     Dates: start: 20090401, end: 20110301
  7. SYNTHROID [Suspect]
     Dosage: 50 MCG DAILY DOSE
     Dates: start: 20110301

REACTIONS (7)
  - ERYTHEMA [None]
  - GENERALISED ERYTHEMA [None]
  - SKIN ATROPHY [None]
  - MALAISE [None]
  - RASH MACULAR [None]
  - RASH [None]
  - BLISTER [None]
